FAERS Safety Report 8906424 (Version 1)
Quarter: 2012Q4

REPORT INFORMATION
  Report Type: Spontaneous
  Country: US (occurrence: None)
  Receive Date: 20121109
  Receipt Date: 20121109
  Transmission Date: 20130627
  Serious: Yes (Other)
  Sender: FDA-Public Use
  Company Number: None

PATIENT
  Sex: Female

DRUGS (1)
  1. CYMBALTA [Suspect]
     Dates: start: 2004, end: 20120923

REACTIONS (16)
  - Drug ineffective [None]
  - Depression [None]
  - Agitation [None]
  - Anger [None]
  - Blood pressure increased [None]
  - Migraine [None]
  - Ear pain [None]
  - Joint swelling [None]
  - Pain [None]
  - Vision blurred [None]
  - Insomnia [None]
  - Paraesthesia [None]
  - Convulsion [None]
  - Decreased appetite [None]
  - Chest pain [None]
  - Palpitations [None]
